FAERS Safety Report 5047234-3 (Version None)
Quarter: 2006Q3

REPORT INFORMATION
  Report Type: 
  Country: None (occurrence: None)
  Receive Date: 20060703
  Receipt Date: 20060621
  Transmission Date: 20061208
  Serious: Yes (Death)
  Sender: FDA-Public Use
  Company Number: 226592

PATIENT
  Age: 49 Year
  Sex: Female
  Weight: 98 kg

DRUGS (6)
  1. MABTHERA (RITUXIMAB) CONC FOR SOLUTION FOR INFUSION [Suspect]
     Indication: NON-HODGKIN'S LYMPHOMA
     Dosage: INTRAVENOUS
     Route: 042
     Dates: start: 20060119, end: 20060428
  2. METHOTREXATE [Suspect]
     Dosage: SEE IMAGE
     Dates: start: 20060118, end: 20060329
  3. DOXORUBICIN HCL [Suspect]
     Dosage: INTRAVENOUS
     Route: 042
     Dates: start: 20060119, end: 20060328
  4. ETOPOPHOS (ETOPOSIDE) [Suspect]
     Dosage: INTRAVENOUS
     Route: 042
     Dates: start: 20060429, end: 20060503
  5. CYCLOPHOSPHAMIDE [Suspect]
     Dosage: INTRAVENOUS
     Route: 042
     Dates: start: 20060119, end: 20060328
  6. CYTARABINE [Suspect]
     Dosage: SEE IMAGE
     Route: 042
     Dates: start: 20060118, end: 20060503

REACTIONS (9)
  - APHASIA [None]
  - BONE MARROW FAILURE [None]
  - BRAIN COMPRESSION [None]
  - CANDIDA SEPSIS [None]
  - CEREBRAL HAEMATOMA [None]
  - ENTEROBACTER SEPSIS [None]
  - HEMIPARESIS [None]
  - HYPERTHERMIA [None]
  - PANCYTOPENIA [None]
